FAERS Safety Report 8767374 (Version 3)
Quarter: 2012Q4

REPORT INFORMATION
  Report Type: 
  Country: DK (occurrence: DK)
  Receive Date: 20120904
  Receipt Date: 20121019
  Transmission Date: 20130627
  Serious: Yes (Hospitalization, Other)
  Sender: FDA-Public Use
  Company Number: DK-B.I. PHARMACEUTICALS,INC./RIDGEFIELD-2012-SW-00663DB

PATIENT
  Age: 20 Year
  Sex: Male

DRUGS (5)
  1. SIFROL TAB [Suspect]
     Route: 048
     Dates: start: 20120602
  2. ABILIFY [Suspect]
     Dosage: Pharmaceutical form: 245; dosage text: 130 mg UNK
     Route: 048
     Dates: start: 20120602
  3. RITALIN [Suspect]
     Dosage: Form: modified release hard capsule, Ritalin Uno; dosage text 420 UNK
     Route: 048
     Dates: start: 20120602
  4. MELATONIN [Suspect]
     Dosage: Dosage 15 mg, UNK
     Dates: start: 20120602
  5. TRUXAL [Suspect]
     Dosage: Doasge: 1100 mg, UNK
     Route: 048
     Dates: start: 20120602

REACTIONS (10)
  - Suicide attempt [Unknown]
  - Intentional overdose [Unknown]
  - Abdominal pain upper [Unknown]
  - Pain in extremity [Unknown]
  - Restlessness [Unknown]
  - Gait disturbance [Unknown]
  - Sensation of heaviness [Unknown]
  - Atrial fibrillation [Unknown]
  - Body temperature decreased [Unknown]
  - Dystonia [Unknown]
